FAERS Safety Report 10395264 (Version 1)
Quarter: 2014Q3

REPORT INFORMATION
  Report Type: Spontaneous
  Country: BE (occurrence: BE)
  Receive Date: 20140820
  Receipt Date: 20140820
  Transmission Date: 20150326
  Serious: Yes (Other)
  Sender: FDA-Public Use
  Company Number: PHHY2014BE101107

PATIENT
  Age: 77 Year
  Sex: Male

DRUGS (3)
  1. PANTOMED//PANTOPRAZOLE SODIUM SESQUIHYDRATE [Concomitant]
  2. TASIGNA [Suspect]
     Active Substance: NILOTINIB
     Indication: CHRONIC MYELOID LEUKAEMIA
     Dosage: 400 MG, BID
     Dates: start: 2007
  3. SIMVASTATIN. [Concomitant]
     Active Substance: SIMVASTATIN

REACTIONS (4)
  - Cardiac valve disease [Unknown]
  - Coronary artery stenosis [Unknown]
  - Concomitant disease aggravated [Unknown]
  - Arteriosclerosis [Unknown]

NARRATIVE: CASE EVENT DATE: 20140630
